FAERS Safety Report 9792472 (Version 1)
Quarter: 2014Q1

REPORT INFORMATION
  Report Type: Spontaneous
  Country: US (occurrence: US)
  Receive Date: 20140102
  Receipt Date: 20140102
  Transmission Date: 20141002
  Serious: No
  Sender: FDA-Public Use
  Company Number: US-BIOGENIDEC-2013BI123844

PATIENT
  Sex: 0

DRUGS (1)
  1. TECFIDERA [Suspect]
     Indication: PRODUCT USED FOR UNKNOWN INDICATION

REACTIONS (9)
  - Depressed mood [Unknown]
  - Insomnia [Unknown]
  - Decreased appetite [Unknown]
  - Weight increased [Unknown]
  - Abdominal distension [Unknown]
  - Multiple sclerosis relapse [Unknown]
  - Gastrointestinal disorder [Unknown]
  - Flushing [Unknown]
  - Abdominal pain upper [Unknown]
